FAERS Safety Report 8835607 (Version 1)
Quarter: 2012Q4

REPORT INFORMATION
  Report Type: 
  Country: US (occurrence: US)
  Receive Date: 20121011
  Receipt Date: 20121011
  Transmission Date: 20130627
  Serious: Yes (Hospitalization)
  Sender: FDA-Public Use
  Company Number: US-ACTELION-A-NJ2012-70717

PATIENT
  Age: 47 Year
  Sex: Female

DRUGS (3)
  1. TRACLEER [Suspect]
     Indication: PULMONARY ARTERIAL HYPERTENSION
     Dosage: UNK
     Route: 048
     Dates: start: 201004
  2. TRACLEER [Suspect]
     Dosage: UNK
     Route: 048
  3. SILDENAFIL [Concomitant]

REACTIONS (3)
  - Transient ischaemic attack [Unknown]
  - Hypoaesthesia [Recovered/Resolved]
  - Local swelling [Recovered/Resolved]
